FAERS Safety Report 12980501 (Version 1)
Quarter: 2016Q4

REPORT INFORMATION
  Report Type: Spontaneous
  Country: US (occurrence: US)
  Receive Date: 20161128
  Receipt Date: 20161128
  Transmission Date: 20170207
  Serious: Yes (Other)
  Sender: FDA-Public Use
  Company Number: US-MYLANLABS-2016M1051193

PATIENT

DRUGS (1)
  1. ALPRAZOLAM. [Suspect]
     Active Substance: ALPRAZOLAM
     Indication: PRODUCT USED FOR UNKNOWN INDICATION
     Dosage: UNK

REACTIONS (16)
  - Erythema [Unknown]
  - Porphyria [Unknown]
  - Blister [Unknown]
  - Muscle spasms [Unknown]
  - Tachycardia [Unknown]
  - Faeces discoloured [Unknown]
  - Vomiting [Unknown]
  - Photosensitivity reaction [Unknown]
  - Sinusitis [Unknown]
  - Diarrhoea [Unknown]
  - Prostate infection [Unknown]
  - Loss of consciousness [Unknown]
  - Pyrexia [Unknown]
  - Sinus disorder [Unknown]
  - Back pain [Unknown]
  - Adverse event [Unknown]
